FAERS Safety Report 18560203 (Version 2)
Quarter: 2020Q4

REPORT INFORMATION
  Report Type: Spontaneous
  Country: US (occurrence: US)
  Receive Date: 20201130
  Receipt Date: 20201204
  Transmission Date: 20210114
  Serious: No
  Sender: FDA-Public Use
  Company Number: US-PFIZER INC-2020470697

PATIENT
  Age: 22 Year
  Sex: Female

DRUGS (4)
  1. CANASA [Concomitant]
     Active Substance: MESALAMINE
     Dosage: UNK
  2. LIALDA [Concomitant]
     Active Substance: MESALAMINE
     Dosage: UNK
  3. XELJANZ XR [Suspect]
     Active Substance: TOFACITINIB CITRATE
     Indication: COLITIS ULCERATIVE
     Dosage: 11 MG, 1X/DAY
     Route: 048
  4. XELJANZ [Suspect]
     Active Substance: TOFACITINIB CITRATE
     Indication: COLITIS ULCERATIVE
     Dosage: UP TO 20 MG DAILY (10 MG TABLETS, UP TO 2 PER DAY)

REACTIONS (3)
  - Stress [Unknown]
  - Intentional product misuse [Unknown]
  - Anxiety [Unknown]
